FAERS Safety Report 9309824 (Version 2)
Quarter: 2013Q4

REPORT INFORMATION
  Report Type: Spontaneous
  Country: US (occurrence: US)
  Receive Date: 20130525
  Receipt Date: 20131125
  Transmission Date: 20140711
  Serious: Yes (Other)
  Sender: FDA-Public Use
  Company Number: US201209005540

PATIENT
  Age: 58 Year
  Sex: Female
  Weight: 104.31 kg

DRUGS (21)
  1. BYDUREON 2MG VIAL + SYRINGE [Suspect]
     Indication: TYPE 2 DIABETES MELLITUS
     Dosage: THERAPY ON APR13
     Route: 058
     Dates: start: 2012
  2. BYETTA PEN DISPOSABLE [Suspect]
     Indication: TYPE 2 DIABETES MELLITUS
     Route: 058
  3. BYETTA PEN DISPOSABLE [Suspect]
     Indication: TYPE 2 DIABETES MELLITUS
     Route: 058
  4. ONGLYZA TABS [Concomitant]
     Indication: TYPE 2 DIABETES MELLITUS
     Route: 048
  5. KLONOPIN [Concomitant]
     Route: 048
  6. PRILOSEC [Concomitant]
     Route: 048
  7. WELLBUTRIN XL [Concomitant]
     Route: 048
  8. TROXERUTIN [Concomitant]
  9. SINGULAIR [Concomitant]
     Route: 048
  10. NYSTATIN [Concomitant]
  11. NEURONTIN [Concomitant]
     Indication: RESTLESS LEGS SYNDROME
     Route: 048
  12. METFORMIN [Concomitant]
     Indication: TYPE 2 DIABETES MELLITUS
  13. AMITIZA [Concomitant]
     Route: 048
  14. ALBUTEROL SULFATE [Concomitant]
  15. ADVAIR [Concomitant]
  16. CLARITIN [Concomitant]
     Route: 048
  17. ZIAC [Concomitant]
     Dates: end: 2012
  18. ALLEGRA [Concomitant]
  19. VICTOZA [Concomitant]
     Indication: TYPE 2 DIABETES MELLITUS
  20. BACTRIM [Concomitant]
     Indication: CYSTITIS
     Dates: start: 20130120
  21. VITAMIN D [Concomitant]

REACTIONS (20)
  - Hypertension [Recovered/Resolved]
  - Renal disorder [Unknown]
  - Parathyroid tumour [Unknown]
  - Underdose [Recovered/Resolved]
  - Blood glucose increased [Unknown]
  - Malaise [Unknown]
  - Dysphonia [Unknown]
  - Cataract [Unknown]
  - Bronchitis chronic [Not Recovered/Not Resolved]
  - Chest pain [Not Recovered/Not Resolved]
  - Back pain [Not Recovered/Not Resolved]
  - Cystitis [Not Recovered/Not Resolved]
  - Blood cholesterol increased [Unknown]
  - Weight decreased [Not Recovered/Not Resolved]
  - Injection site haemorrhage [Unknown]
  - Injection site bruising [Unknown]
  - Asthenia [Not Recovered/Not Resolved]
  - Abdominal pain upper [Recovered/Resolved]
  - Injection site extravasation [Unknown]
  - Gingival pain [Unknown]
